FAERS Safety Report 9394477 (Version 1)
Quarter: 2013Q3

REPORT INFORMATION
  Report Type: Report from Study
  Country: BR (occurrence: BR)
  Receive Date: 20130711
  Receipt Date: 20130711
  Transmission Date: 20140515
  Serious: Yes (Other)
  Sender: FDA-Public Use
  Company Number: PHHY2013BR071773

PATIENT
  Sex: Female

DRUGS (2)
  1. RITALIN LA [Suspect]
     Dosage: 10 MG, UNK
     Route: 065
     Dates: start: 201302, end: 201303
  2. RITALIN LA [Suspect]
     Dosage: 20 MG, UNK
     Route: 065
     Dates: start: 201303

REACTIONS (3)
  - Dyspnoea [Recovered/Resolved]
  - Insomnia [Recovered/Resolved]
  - Malaise [Unknown]
